FAERS Safety Report 4434496-6 (Version None)
Quarter: 2004Q3

REPORT INFORMATION
  Report Type: 
  Country: None (occurrence: None)
  Receive Date: 20040726
  Receipt Date: 20040511
  Transmission Date: 20050211
  Serious: No
  Sender: FDA-Public Use
  Company Number: USA040464906

PATIENT
  Age: 76 Year
  Sex: Female
  Weight: 64 kg

DRUGS (5)
  1. FORTEO [Suspect]
     Indication: OSTEOPOROSIS
     Dosage: 20 UG  DAY
     Dates: start: 20040324
  2. FOSAMAX [Concomitant]
  3. TAMOXIFEN CITRATE [Concomitant]
  4. ADVIL [Concomitant]
  5. TYLENOL [Concomitant]

REACTIONS (5)
  - ABDOMINAL DISTENSION [None]
  - LOCALISED EXFOLIATION [None]
  - PAIN IN EXTREMITY [None]
  - SKIN IRRITATION [None]
  - STOMACH DISCOMFORT [None]
